FAERS Safety Report 7015316-2 (Version None)
Quarter: 2010Q3

REPORT INFORMATION
  Report Type: 
  Country: None (occurrence: None)
  Receive Date: 20100922
  Receipt Date: 20100914
  Transmission Date: 20110219
  Serious: Yes (Other)
  Sender: FDA-Public Use
  Company Number: DEP_00406_2010

PATIENT
  Sex: Female

DRUGS (6)
  1. GLUMETZA [Suspect]
     Indication: DIABETES MELLITUS
     Dosage: (500 MG QD ORAL), (1000 MG, PER DAY ORAL)
     Route: 048
     Dates: start: 20100101, end: 20100101
  2. GLUMETZA [Suspect]
     Indication: DIABETES MELLITUS
     Dosage: (500 MG QD ORAL), (1000 MG, PER DAY ORAL)
     Route: 048
     Dates: start: 20100101, end: 20100901
  3. GLEEVAC (NOT SPECIFIED) [Suspect]
     Indication: CHRONIC MYELOID LEUKAEMIA
     Dosage: (400 MG, PER DAY)
     Dates: start: 20100501
  4. PLAVIX [Concomitant]
  5. CRESTOR [Concomitant]
  6. TOPROL-XL [Concomitant]

REACTIONS (3)
  - CHRONIC MYELOID LEUKAEMIA [None]
  - DIARRHOEA [None]
  - NAUSEA [None]
